FAERS Safety Report 21874586 (Version 1)
Quarter: 2023Q1

REPORT INFORMATION
  Report Type: Report from Study
  Country: US (occurrence: None)
  Receive Date: 20230117
  Receipt Date: 20230117
  Transmission Date: 20230417
  Serious: Yes (Death)
  Sender: FDA-Public Use
  Company Number: 2023A006877

PATIENT
  Sex: Male
  Weight: 64.8 kg

DRUGS (9)
  1. CALQUENCE [Suspect]
     Active Substance: ACALABRUTINIB
     Indication: Chronic lymphocytic leukaemia
     Route: 048
  2. ASPIRIN [Concomitant]
     Active Substance: ASPIRIN
  3. ATORVASTATIN [Concomitant]
     Active Substance: ATORVASTATIN
  4. ELIQUIS [Concomitant]
     Active Substance: APIXABAN
  5. GABAPENTIN [Concomitant]
     Active Substance: GABAPENTIN
  6. METOPROLOL [Concomitant]
     Active Substance: METOPROLOL
  7. MIRALAX [Concomitant]
     Active Substance: POLYETHYLENE GLYCOL 3350
  8. OXYCODONE [Concomitant]
     Active Substance: OXYCODONE
  9. TRAMADOL [Concomitant]
     Active Substance: TRAMADOL

REACTIONS (1)
  - Death [Fatal]
